FAERS Safety Report 15319723 (Version 1)
Quarter: 2018Q3

REPORT INFORMATION
  Report Type: Spontaneous
  Country: US (occurrence: US)
  Receive Date: 20180827
  Receipt Date: 20180827
  Transmission Date: 20181010
  Serious: No
  Sender: FDA-Public Use
  Company Number: US-ASTRAZENECA-2018SF04489

PATIENT
  Age: 17316 Day
  Sex: Male

DRUGS (1)
  1. FASENRA [Suspect]
     Active Substance: BENRALIZUMAB
     Indication: ASTHMA
     Route: 058
     Dates: start: 201803

REACTIONS (5)
  - Oral pruritus [Recovered/Resolved]
  - Insomnia [Recovered/Resolved]
  - Urticaria [Recovered/Resolved]
  - Sleep apnoea syndrome [Recovered/Resolved]
  - Hypersensitivity [Recovered/Resolved]

NARRATIVE: CASE EVENT DATE: 20180508
